FAERS Safety Report 4352805-3 (Version None)
Quarter: 2004Q2

REPORT INFORMATION
  Report Type: 
  Country: None (occurrence: None)
  Receive Date: 20040429
  Receipt Date: 20040412
  Transmission Date: 20050107
  Serious: Yes (Other)
  Sender: FDA-Public Use
  Company Number: 2004US002080

PATIENT
  Age: 61 Year
  Sex: Male
  Weight: 69.4 kg

DRUGS (6)
  1. ALOXI [Suspect]
     Indication: PROPHYLAXIS OF NAUSEA AND VOMITING
     Dosage: 0.25  MG, SINGLE, INTRAVENOUS
     Route: 042
     Dates: start: 20040412, end: 20040412
  2. ASPIRIN [Concomitant]
  3. DEXAMETHSONE (DEXAMETHASONE) [Concomitant]
  4. SODIUM CHLORIDE [Concomitant]
  5. CARBOPLATIN [Concomitant]
  6. ETOPOSIDE [Concomitant]

REACTIONS (5)
  - DISORIENTATION [None]
  - GRAND MAL CONVULSION [None]
  - RED BLOOD CELL COUNT DECREASED [None]
  - TONGUE BITING [None]
  - WHITE BLOOD CELL COUNT INCREASED [None]
